FAERS Safety Report 9012558 (Version 1)
Quarter: 2013Q1

REPORT INFORMATION
  Report Type: Spontaneous
  Country: US (occurrence: US)
  Receive Date: 20130114
  Receipt Date: 20130114
  Transmission Date: 20140127
  Serious: Yes (Disabling, Other)
  Sender: FDA-Public Use
  Company Number: US-PFIZER INC-2013013571

PATIENT
  Age: 51 Year
  Sex: Female
  Weight: 104 kg

DRUGS (6)
  1. LYRICA [Suspect]
     Indication: PAIN MANAGEMENT
     Dosage: UNK
  2. ZANAFLEX [Suspect]
     Indication: HYPOTONIA
     Dosage: 4 MG, 2X/DAY
     Dates: start: 201204
  3. ZANAFLEX [Suspect]
     Dosage: 4 MG, 1X/DAY
  4. BENICAR HCT [Concomitant]
     Indication: HYPERTENSION
     Dosage: 20/12.5 MG, UNK
  5. LIDOCAINE [Concomitant]
     Dosage: UNK
  6. NORFLEX [Concomitant]
     Indication: PAIN MANAGEMENT
     Dosage: UNK

REACTIONS (8)
  - Road traffic accident [Unknown]
  - Activities of daily living impaired [Unknown]
  - Neck pain [Unknown]
  - Drug intolerance [Unknown]
  - Confusional state [Unknown]
  - Bradyphrenia [Unknown]
  - Hypokinesia [Unknown]
  - Somnolence [Unknown]
